FAERS Safety Report 4293445-4 (Version None)
Quarter: 2004Q1

REPORT INFORMATION
  Report Type: 
  Country: None (occurrence: None)
  Receive Date: 20040212
  Receipt Date: 20030626
  Transmission Date: 20041129
  Serious: No
  Sender: FDA-Public Use
  Company Number: US-GLAXOSMITHKLINE-A0414056A

PATIENT
  Sex: Male

DRUGS (1)
  1. PAXIL [Suspect]
     Route: 048
     Dates: start: 20030625

REACTIONS (7)
  - ANXIETY [None]
  - DEPRESSED MOOD [None]
  - DISTURBANCE IN ATTENTION [None]
  - DIZZINESS [None]
  - FEELING ABNORMAL [None]
  - PERFORMANCE STATUS DECREASED [None]
  - TREMOR [None]
